FAERS Safety Report 6832612-X (Version None)
Quarter: 2010Q3

REPORT INFORMATION
  Report Type: 
  Country: None (occurrence: None)
  Receive Date: 20100712
  Receipt Date: 20070318
  Transmission Date: 20110219
  Serious: No
  Sender: FDA-Public Use
  Company Number: US-PFIZER INC-2007021442

PATIENT
  Sex: Female
  Weight: 79.83 kg

DRUGS (7)
  1. CHANTIX [Suspect]
     Indication: SMOKING CESSATION THERAPY
     Route: 048
     Dates: start: 20070201
  2. FLONASE [Concomitant]
     Indication: MULTIPLE ALLERGIES
     Route: 045
  3. ZOCOR [Concomitant]
     Indication: BLOOD CHOLESTEROL
     Route: 048
  4. LISINOPRIL [Concomitant]
     Indication: HYPERTENSION
     Route: 048
  5. VENLAFAXINE [Concomitant]
     Indication: DEPRESSION
     Route: 048
  6. HYDROXYZINE [Concomitant]
     Indication: MULTIPLE ALLERGIES
     Route: 048
  7. FEXOFENADINE [Concomitant]
     Indication: MULTIPLE ALLERGIES
     Route: 048

REACTIONS (2)
  - INSOMNIA [None]
  - NAUSEA [None]
